FAERS Safety Report 23590980 (Version 1)
Quarter: 2024Q1

REPORT INFORMATION
  Report Type: Report from Study
  Country: US (occurrence: US)
  Receive Date: 20240304
  Receipt Date: 20240304
  Transmission Date: 20240410
  Serious: Yes (Hospitalization)
  Sender: FDA-Public Use
  Company Number: US-Eisai-EC-2024-160619

PATIENT
  Age: 52 Year
  Sex: Male

DRUGS (2)
  1. LENVIMA [Suspect]
     Active Substance: LENVATINIB
     Indication: Renal cancer
     Route: 048
     Dates: start: 20231107
  2. KEYTRUDA [Concomitant]
     Active Substance: PEMBROLIZUMAB

REACTIONS (1)
  - Infection [Recovered/Resolved]

NARRATIVE: CASE EVENT DATE: 20240201
